FAERS Safety Report 20380202 (Version 1)
Quarter: 2022Q1

REPORT INFORMATION
  Report Type: Spontaneous
  Country: ES (occurrence: ES)
  Receive Date: 20220126
  Receipt Date: 20220126
  Transmission Date: 20220423
  Serious: Yes (Hospitalization)
  Sender: FDA-Public Use
  Company Number: ES-drreddys-LIT/SPN/22/0146177

PATIENT
  Age: 63 Year
  Sex: Male

DRUGS (1)
  1. CINACALCET [Suspect]
     Active Substance: CINACALCET
     Indication: Hyperparathyroidism primary

REACTIONS (1)
  - Drug ineffective [Unknown]
